FAERS Safety Report 12629206 (Version 1)
Quarter: 2016Q3

REPORT INFORMATION
  Report Type: Spontaneous
  Country: US (occurrence: US)
  Receive Date: 20160808
  Receipt Date: 20160808
  Transmission Date: 20161109
  Serious: Yes (Other)
  Sender: FDA-Public Use
  Company Number: US-AMGEN-USASP2016099764

PATIENT
  Age: 43 Year
  Sex: Female

DRUGS (1)
  1. ENBREL [Suspect]
     Active Substance: ETANERCEPT
     Indication: ANKYLOSING SPONDYLITIS
     Dosage: UNK UNK, UNK
     Route: 065
     Dates: start: 2016

REACTIONS (5)
  - Weight increased [Unknown]
  - Pallor [Unknown]
  - Arthralgia [Unknown]
  - Impaired gastric emptying [Unknown]
  - Hypophagia [Unknown]

NARRATIVE: CASE EVENT DATE: 2016
